FAERS Safety Report 10415096 (Version 1)
Quarter: 2014Q3

REPORT INFORMATION
  Report Type: Spontaneous
  Country: US (occurrence: None)
  Receive Date: 20140827
  Receipt Date: 20140827
  Transmission Date: 20150326
  Serious: No
  Sender: FDA-Public Use
  Company Number: None

PATIENT
  Age: 90 Year
  Sex: Male
  Weight: 82.4 kg

DRUGS (1)
  1. TAMSULOSIN [Suspect]
     Active Substance: TAMSULOSIN
     Indication: BENIGN PROSTATIC HYPERPLASIA
     Dosage: MG
     Route: 048
     Dates: start: 20130910, end: 20140513

REACTIONS (2)
  - Epistaxis [None]
  - Phlebitis [None]

NARRATIVE: CASE EVENT DATE: 20140513
